APPROVED DRUG PRODUCT: ALBUTEROL SULFATE
Active Ingredient: ALBUTEROL SULFATE
Strength: EQ 0.083% BASE
Dosage Form/Route: SOLUTION;INHALATION
Application: A073495 | Product #001
Applicant: COPLEY PHARMACEUTICAL INC
Approved: May 28, 1993 | RLD: No | RS: No | Type: DISCN